FAERS Safety Report 9114392 (Version 1)
Quarter: 2013Q1

REPORT INFORMATION
  Report Type: Spontaneous
  Country: US (occurrence: None)
  Receive Date: 20130220
  Receipt Date: 20130220
  Transmission Date: 20140127
  Serious: No
  Sender: FDA-Public Use
  Company Number: None

PATIENT
  Age: 44 Year
  Sex: Male
  Weight: 95.26 kg

DRUGS (2)
  1. METHYLPHENIDATE [Suspect]
     Indication: ATTENTION DEFICIT/HYPERACTIVITY DISORDER
     Dosage: 40   3X DAILY   PO?02/16/2013  --  02/18/2013
     Route: 048
     Dates: start: 20130216, end: 20130218
  2. METHYLPHENIDATE [Suspect]
     Dosage: 40   3X DAILY  PO?01/01/2002  -  01/01/2002
     Route: 048
     Dates: start: 20020101, end: 20020101

REACTIONS (4)
  - Irritability [None]
  - Product colour issue [None]
  - Tension [None]
  - Abnormal behaviour [None]
